FAERS Safety Report 12742190 (Version 1)
Quarter: 2016Q3

REPORT INFORMATION
  Report Type: Spontaneous
  Country: JP (occurrence: JP)
  Receive Date: 20160914
  Receipt Date: 20160914
  Transmission Date: 20161109
  Serious: Yes (Hospitalization)
  Sender: FDA-Public Use
  Company Number: JP-BRISTOL-MYERS SQUIBB COMPANY-13829536

PATIENT
  Age: 33 Year
  Sex: Female
  Weight: 75 kg

DRUGS (13)
  1. NEUER [Suspect]
     Active Substance: CETRAXATE HYDROCHLORIDE
     Indication: OBSTETRICAL PROCEDURE
     Dosage: 200 MG, TID
     Route: 048
     Dates: start: 20070613, end: 20070613
  2. AKINETON [Suspect]
     Active Substance: BIPERIDEN HYDROCHLORIDE
     Indication: SCHIZOPHRENIA
     Dosage: 2 MG, QD
     Route: 048
     Dates: start: 20061206, end: 20070415
  3. ABILIFY [Suspect]
     Active Substance: ARIPIPRAZOLE
     Dosage: 9 MG, QD
     Route: 048
     Dates: start: 20070122
  4. SAWACILLIN [Suspect]
     Active Substance: AMOXICILLIN
     Indication: OBSTETRICAL PROCEDURE
     Dosage: 250 MG, TID
     Route: 048
     Dates: start: 20070613, end: 20070613
  5. ATONIN-O [Suspect]
     Active Substance: OXYTOCIN
     Indication: LABOUR INDUCTION
     Dosage: 5 IU, BID
     Route: 041
     Dates: start: 20070613, end: 20070613
  6. DEPAS [Suspect]
     Active Substance: ETIZOLAM
     Indication: SCHIZOPHRENIA
     Dosage: 2 MG, QD
     Route: 048
     Dates: start: 20061206, end: 20070204
  7. METHERGIN [Suspect]
     Active Substance: METHYLERGONOVINE MALEATE
     Indication: OBSTETRICAL PROCEDURE
     Dosage: 0.125 MG, TID
     Route: 048
     Dates: start: 20070613, end: 20070613
  8. AKINETON [Suspect]
     Active Substance: BIPERIDEN HYDROCHLORIDE
     Dosage: 1.5 MG, QD
     Route: 048
     Dates: start: 20070416
  9. DEPAS [Suspect]
     Active Substance: ETIZOLAM
     Dosage: 1 MG, QD
     Route: 048
     Dates: start: 20070205
  10. DORAL [Suspect]
     Active Substance: QUAZEPAM
     Indication: SCHIZOPHRENIA
     Dosage: 15 MG, QD
     Route: 048
     Dates: start: 20070611
  11. PENTCILLIN [Suspect]
     Active Substance: PIPERACILLIN SODIUM
     Indication: OBSTETRICAL PROCEDURE
     Dosage: 1 G, QD
     Route: 041
     Dates: start: 20070613, end: 20070613
  12. ABILIFY [Suspect]
     Active Substance: ARIPIPRAZOLE
     Dosage: 24 MG, QD
     Route: 048
     Dates: start: 20061215, end: 20070121
  13. ABILIFY [Suspect]
     Active Substance: ARIPIPRAZOLE
     Indication: SCHIZOPHRENIA
     Dosage: 12 MG, QD
     Route: 048
     Dates: start: 20061206, end: 20061214

REACTIONS (5)
  - Restlessness [Unknown]
  - Maternal exposure during pregnancy [Recovered/Resolved]
  - Gestational hypertension [Recovered/Resolved]
  - Live birth [Unknown]
  - Oedema [None]

NARRATIVE: CASE EVENT DATE: 200701
